FAERS Safety Report 8613531-5 (Version None)
Quarter: 2012Q3

REPORT INFORMATION
  Report Type: 
  Country: None (occurrence: None)
  Receive Date: 20120823
  Receipt Date: 20120813
  Transmission Date: 20120928
  Serious: Yes (Death, Other)
  Sender: FDA-Public Use
  Company Number: CO-AMGEN-COLSP2012051979

PATIENT
  Age: 62 Year
  Sex: Male

DRUGS (1)
  1. ENBREL [Suspect]
     Indication: RHEUMATOID ARTHRITIS
     Dosage: 50.0 MG, 1X/WK
     Route: 058
     Dates: start: 20101026, end: 20120301

REACTIONS (3)
  - DEATH [None]
  - CHEST PAIN [None]
  - DYSPNOEA [None]
